FAERS Safety Report 7571368-2 (Version None)
Quarter: 2011Q2

REPORT INFORMATION
  Report Type: 
  Country: None (occurrence: None)
  Receive Date: 20110624
  Receipt Date: 20110615
  Transmission Date: 20111010
  Serious: Yes (Hospitalization)
  Sender: FDA-Public Use
  Company Number: B0728369A

PATIENT
  Age: 67 Year
  Sex: Female

DRUGS (6)
  1. CLOZAPINE [Suspect]
     Indication: SCHIZOPHRENIA
     Dosage: 700MG PER DAY
     Route: 048
     Dates: start: 20030420
  2. SENNA GLYCOSIDE [Suspect]
     Route: 065
  3. DIGOXIN [Suspect]
     Route: 065
  4. DOCUSATE SODIUM [Suspect]
     Route: 065
  5. FUROSEMIDE [Suspect]
     Route: 065
  6. AMLODIPINE [Suspect]
     Route: 065

REACTIONS (2)
  - DRUG LEVEL INCREASED [None]
  - OVERDOSE [None]
